FAERS Safety Report 17151998 (Version 3)
Quarter: 2020Q3

REPORT INFORMATION
  Report Type: Spontaneous
  Country: US (occurrence: US)
  Receive Date: 20191213
  Receipt Date: 20200807
  Transmission Date: 20201102
  Serious: Yes (Hospitalization, Other)
  Sender: FDA-Public Use
  Company Number: US-VERTEX PHARMACEUTICALS-2019-012614

PATIENT
  Age: 38 Year
  Sex: Female

DRUGS (26)
  1. GLUTATHIONE [Concomitant]
     Active Substance: GLUTATHIONE
     Dosage: UNK, QD
     Route: 048
  2. MOMETASONE [Concomitant]
     Active Substance: MOMETASONE
     Dosage: 1 SPRAY IN NOSTRIL, BID
  3. PANCRELIPASE. [Concomitant]
     Active Substance: PANCRELIPASE
     Dosage: 6?8 CAPSULES W MEALS + SNACKS UP TO 6 TIMES A DAY
  4. TRIKAFTA [Suspect]
     Active Substance: ELEXACAFTOR\IVACAFTOR\TEZACAFTOR
     Indication: CYSTIC FIBROSIS
     Dosage: 2 ORANGE TABLETS AM; 1 BLUE TABLET PM
     Route: 048
     Dates: start: 20191105
  5. COENZYME Q10 [Concomitant]
     Active Substance: DIETARY SUPPLEMENT\UBIDECARENONE
     Dosage: 100 MG, QD
     Route: 048
  6. SYMBICORT [Concomitant]
     Active Substance: BUDESONIDE\FORMOTEROL FUMARATE DIHYDRATE
     Dosage: 2 PUFFS, BID
     Route: 055
  7. GENTAMICIN. [Concomitant]
     Active Substance: GENTAMICIN
  8. FERROUS SULFATE. [Concomitant]
     Active Substance: FERROUS SULFATE
     Dosage: 1 DOSAGE FORM, QD
     Route: 048
  9. OMEGA?3 FATTY ACIDS [Concomitant]
     Active Substance: OMEGA-3 FATTY ACIDS
     Dosage: 1 DOSAGE FORM, QD
     Route: 048
  10. LORATADINE. [Concomitant]
     Active Substance: LORATADINE
  11. AZTREONAM LYSINE [Concomitant]
     Active Substance: AZTREONAM LYSINE
     Dosage: 75 MG, TID (28 DAYS ON AND OFF)
     Route: 055
  12. PULMOZYME [Concomitant]
     Active Substance: DORNASE ALFA
     Dosage: 2.5 MILLILITER, BID
     Route: 055
  13. SINGULAIR [Concomitant]
     Active Substance: MONTELUKAST SODIUM
     Dosage: 1 DOSAGE FORM, QD
     Route: 048
  14. PILOCARPINE. [Concomitant]
     Active Substance: PILOCARPINE
     Dosage: 1 DROP, 4 TIMES INTO BOTH EYES
  15. SACCHAROMYCES BOULARDII [Concomitant]
     Active Substance: SACCHAROMYCES CEREVISIAE
     Dosage: 250 MG, QD
     Route: 048
  16. SERTRALINE [Concomitant]
     Active Substance: SERTRALINE HYDROCHLORIDE
     Dosage: 1.5 TABLETS, QD
     Route: 048
  17. ALBUTEROL [SALBUTAMOL] [Concomitant]
     Active Substance: ALBUTEROL
     Dosage: 3 MILLILITER, 4 TIMES
  18. ARGININE [Concomitant]
     Active Substance: ARGININE
     Dosage: 2 DOSAGE FORM, QD
     Route: 048
  19. OMEPRAZOLE. [Concomitant]
     Active Substance: OMEPRAZOLE
     Dosage: 1 DOSAGE FORM, QD
     Route: 048
  20. VENTOLIN HFA [Concomitant]
     Active Substance: ALBUTEROL SULFATE
     Dosage: 2 PUFFS, 4 TIMES
     Route: 055
  21. SODIUM CHLORIDE. [Concomitant]
     Active Substance: SODIUM CHLORIDE
     Dosage: 5 MILLILITER, BID
  22. TRAMADOL. [Concomitant]
     Active Substance: TRAMADOL
     Dosage: 1 DOSAGE FORM, EVERY 6 HOURS
  23. VITAMIN D [COLECALCIFEROL] [Concomitant]
     Active Substance: CHOLECALCIFEROL
     Dosage: 1 DOSAGE FORM, OONCE A WEEK
     Route: 048
  24. BIOTIN [Concomitant]
     Active Substance: BIOTIN
     Dosage: 1 DOSAGE FORM, QD
     Route: 048
  25. CYCLOBENZAPRINE. [Concomitant]
     Active Substance: CYCLOBENZAPRINE
     Dosage: 1 DOSAGE FORM, EVERY 8 HOURS
     Route: 048
  26. LEVOTHYROXINE. [Concomitant]
     Active Substance: LEVOTHYROXINE
     Dosage: 1 DOSAGE FORM, QD
     Route: 048

REACTIONS (1)
  - Cholecystitis acute [Recovered/Resolved]

NARRATIVE: CASE EVENT DATE: 20191201
